FAERS Safety Report 10912555 (Version 1)
Quarter: 2015Q1

REPORT INFORMATION
  Report Type: Spontaneous
  Country: US (occurrence: None)
  Receive Date: 20150310
  Receipt Date: 20150310
  Transmission Date: 20150721
  Serious: No
  Sender: FDA-Public Use
  Company Number: None

PATIENT
  Age: 59 Year
  Sex: Female

DRUGS (8)
  1. FLONASE [Concomitant]
     Active Substance: FLUTICASONE PROPIONATE
  2. AMPYRA [Suspect]
     Active Substance: DALFAMPRIDINE
     Indication: MULTIPLE SCLEROSIS
     Route: 048
     Dates: start: 201401
  3. HYDROCHLOROTHIAZIDE. [Concomitant]
     Active Substance: HYDROCHLOROTHIAZIDE
  4. AVONEX [Concomitant]
     Active Substance: INTERFERON BETA-1A
  5. PREDNISONE. [Concomitant]
     Active Substance: PREDNISONE
  6. AMPYRA [Concomitant]
     Active Substance: DALFAMPRIDINE
  7. CLONAZEPAM. [Concomitant]
     Active Substance: CLONAZEPAM
  8. TRAMADOL [Concomitant]
     Active Substance: TRAMADOL

REACTIONS (4)
  - Insomnia [None]
  - Palpitations [None]
  - Escherichia urinary tract infection [None]
  - Dysuria [None]

NARRATIVE: CASE EVENT DATE: 20140122
